FAERS Safety Report 22519922 (Version 1)
Quarter: 2023Q2

REPORT INFORMATION
  Report Type: Spontaneous
  Country: US (occurrence: US)
  Receive Date: 20230605
  Receipt Date: 20230605
  Transmission Date: 20230722
  Serious: Yes (Death, Other)
  Sender: FDA-Public Use
  Company Number: US-BRISTOL-MYERS SQUIBB COMPANY-2023-078560

PATIENT
  Age: 57 Year
  Sex: Male
  Weight: 79.2 kg

DRUGS (1)
  1. OPDUALAG [Suspect]
     Active Substance: NIVOLUMAB\RELATLIMAB-RMBW
     Indication: Malignant melanoma
     Dosage: DOSE: 480 MG/160 MG AND FREQUENCY: EVERY 4 WEEKS.
     Route: 042

REACTIONS (1)
  - Death [Fatal]
